FAERS Safety Report 7813910-X (Version None)
Quarter: 2011Q4

REPORT INFORMATION
  Report Type: 
  Country: None (occurrence: None)
  Receive Date: 20111014
  Receipt Date: 20111011
  Transmission Date: 20120403
  Serious: Yes (Other)
  Sender: FDA-Public Use
  Company Number: JP-PFIZER INC-2011242914

PATIENT
  Age: 35 Year
  Sex: Female

DRUGS (2)
  1. ARTANE [Suspect]
     Indication: BLEPHAROSPASM
     Dosage: 2 MG, 1X/DAY
     Route: 048
     Dates: start: 20110930
  2. DEPAS [Concomitant]
     Indication: BLEPHAROSPASM
     Dosage: 0.5 MG, 1X/DAY
     Route: 048
     Dates: start: 20110823

REACTIONS (1)
  - HAEMATURIA [None]
